FAERS Safety Report 11311149 (Version 1)
Quarter: 2015Q3

REPORT INFORMATION
  Report Type: Spontaneous
  Country: US (occurrence: US)
  Receive Date: 20150727
  Receipt Date: 20150727
  Transmission Date: 20151125
  Serious: No
  Sender: FDA-Public Use
  Company Number: PHEH2014US007274

PATIENT
  Sex: Female
  Weight: 80.45 kg

DRUGS (1)
  1. SANDOSTATIN LAR DEPOT [Suspect]
     Active Substance: OCTREOTIDE ACETATE
     Indication: CARCINOID SYNDROME
     Dosage: 40 MG, EVERY 21 DAYS
     Route: 065

REACTIONS (6)
  - Depression [Unknown]
  - Anxiety [Unknown]
  - Influenza like illness [Unknown]
  - Drug ineffective [Unknown]
  - Back pain [Unknown]
  - Abdominal pain [Unknown]
